FAERS Safety Report 8459765-4 (Version None)
Quarter: 2012Q2

REPORT INFORMATION
  Report Type: 
  Country: None (occurrence: None)
  Receive Date: 20120622
  Receipt Date: 20120613
  Transmission Date: 20120825
  Serious: Yes (Other)
  Sender: FDA-Public Use
  Company Number: CA-MERCK-1206USA02145

PATIENT
  Sex: Male

DRUGS (1)
  1. SINGULAIR [Suspect]
     Route: 065

REACTIONS (4)
  - AGITATION [None]
  - TIC [None]
  - SLEEP DISORDER [None]
  - SUICIDAL IDEATION [None]
